FAERS Safety Report 12574981 (Version 1)
Quarter: 2016Q3

REPORT INFORMATION
  Report Type: Spontaneous
  Country: US (occurrence: US)
  Receive Date: 20160720
  Receipt Date: 20160720
  Transmission Date: 20161109
  Serious: No
  Sender: FDA-Public Use
  Company Number: US-ASTELLAS-2015US039698

PATIENT
  Sex: Male

DRUGS (1)
  1. VESICARE [Suspect]
     Active Substance: SOLIFENACIN SUCCINATE
     Indication: URINE ABNORMALITY
     Route: 065
     Dates: start: 201510

REACTIONS (5)
  - Productive cough [Unknown]
  - Constipation [Recovering/Resolving]
  - Dyspnoea [Unknown]
  - Urinary tract infection [Unknown]
  - Lower respiratory tract infection [Unknown]
